FAERS Safety Report 13641933 (Version 2)
Quarter: 2017Q2

REPORT INFORMATION
  Report Type: Spontaneous
  Country: US (occurrence: US)
  Receive Date: 20170612
  Receipt Date: 20170620
  Transmission Date: 20170830
  Serious: No
  Sender: FDA-Public Use
  Company Number: US-ASTRAZENECA-2017SE60728

PATIENT
  Sex: Female

DRUGS (2)
  1. CRESTOR [Suspect]
     Active Substance: ROSUVASTATIN CALCIUM
     Indication: BLOOD CHOLESTEROL INCREASED
     Dosage: 5 MG, FOUR DAYS A WEEK, GENERIC
     Route: 048
  2. CRESTOR [Suspect]
     Active Substance: ROSUVASTATIN CALCIUM
     Indication: BLOOD CHOLESTEROL INCREASED
     Dosage: 5 MG, THREE DAYS A WEEK, GENERIC
     Route: 048
     Dates: start: 201612

REACTIONS (4)
  - Heart valve calcification [Unknown]
  - Tendonitis [Unknown]
  - Tendon injury [Unknown]
  - Myalgia [Unknown]
